FAERS Safety Report 5489375-2 (Version None)
Quarter: 2007Q4

REPORT INFORMATION
  Report Type: 
  Country: None (occurrence: None)
  Receive Date: 20071018
  Receipt Date: 20071016
  Transmission Date: 20080405
  Serious: Yes (Disabling)
  Sender: FDA-Public Use
  Company Number: US-ASTRAZENECA-2007UW22620

PATIENT
  Age: 82 Year
  Sex: Male
  Weight: 70 kg

DRUGS (12)
  1. PRILOSEC [Suspect]
     Indication: GASTROOESOPHAGEAL REFLUX DISEASE
     Route: 048
     Dates: start: 20070327, end: 20070824
  2. PRILOSEC [Suspect]
     Indication: COUGH
     Route: 048
     Dates: start: 20070327, end: 20070824
  3. ALEVE [Suspect]
     Dates: start: 20070801
  4. PREDNISONE [Concomitant]
  5. PREVACID [Concomitant]
  6. DOXAZOSIN MESYLATE [Concomitant]
     Indication: BENIGN PROSTATIC HYPERPLASIA
     Route: 048
     Dates: start: 20030101, end: 20070824
  7. LEXAPRO [Concomitant]
     Indication: DEPRESSION
     Route: 048
     Dates: start: 20060113, end: 20070824
  8. LEXAPRO [Concomitant]
     Route: 048
     Dates: start: 20060113, end: 20070824
  9. AVAPRO [Concomitant]
     Indication: HYPERTENSION
     Route: 048
     Dates: start: 20040709, end: 20070824
  10. SONATA [Concomitant]
     Indication: INSOMNIA
     Route: 048
     Dates: start: 20030101, end: 20070824
  11. ALPRAZOLAM [Concomitant]
     Indication: ANXIETY
     Route: 048
     Dates: start: 20030101, end: 20070824
  12. ALPRAZOLAM [Concomitant]
     Route: 048
     Dates: start: 20030101, end: 20070824

REACTIONS (4)
  - ANOREXIA [None]
  - NAUSEA [None]
  - RENAL FAILURE ACUTE [None]
  - TUBULOINTERSTITIAL NEPHRITIS [None]
